FAERS Safety Report 12260432 (Version 1)
Quarter: 2016Q2

REPORT INFORMATION
  Report Type: Spontaneous
  Country: US (occurrence: US)
  Receive Date: 20160412
  Receipt Date: 20160412
  Transmission Date: 20160815
  Serious: No
  Sender: FDA-Public Use
  Company Number: US-SA-2016SA017748

PATIENT
  Age: 50 Year
  Sex: Female

DRUGS (1)
  1. ALLEGRA [Suspect]
     Active Substance: FEXOFENADINE HYDROCHLORIDE
     Indication: MULTIPLE ALLERGIES
     Dosage: HAS TAKEN 2 FEXOFENADINE HYDROCHLORIDE TABLETS AT THE SAME TIME
     Route: 048
     Dates: start: 20160126

REACTIONS (1)
  - Extra dose administered [Unknown]
